FAERS Safety Report 9701256 (Version 3)
Quarter: 2015Q3

REPORT INFORMATION
  Report Type: Spontaneous
  Country: US (occurrence: US)
  Receive Date: 20131121
  Receipt Date: 20150803
  Transmission Date: 20151125
  Serious: Yes (Hospitalization)
  Sender: FDA-Public Use
  Company Number: US-GILEAD-2008-0016075

PATIENT
  Age: 70 Year
  Sex: Female

DRUGS (16)
  1. TORSEMIDE. [Concomitant]
     Active Substance: TORSEMIDE
     Dosage: UD
     Route: 048
     Dates: start: 20080101
  2. RHINOCORT AQUA [Concomitant]
     Active Substance: BUDESONIDE
     Dosage: UD
     Route: 048
     Dates: start: 20080101
  3. AVALIDE [Concomitant]
     Active Substance: HYDROCHLOROTHIAZIDE\IRBESARTAN
     Dosage: UD
     Route: 048
     Dates: start: 20080101
  4. TOPROL XL [Concomitant]
     Active Substance: METOPROLOL SUCCINATE
     Dosage: UD
     Route: 048
     Dates: start: 20080101
  5. SINGULAIR [Concomitant]
     Active Substance: MONTELUKAST SODIUM
     Dosage: UD
     Dates: start: 20080101
  6. HUMULIN NOS [Concomitant]
     Active Substance: INSULIN HUMAN
     Dosage: UD
     Route: 058
     Dates: start: 20080101
  7. DOXAZOSIN [Concomitant]
     Active Substance: DOXAZOSIN\DOXAZOSIN MESYLATE
     Dosage: UD
     Route: 048
     Dates: start: 20080101
  8. SPIRIVA [Concomitant]
     Active Substance: TIOTROPIUM BROMIDE MONOHYDRATE
     Dosage: UD
     Route: 055
     Dates: start: 20080101
  9. BENADRYL [Concomitant]
     Active Substance: DIPHENHYDRAMINE HYDROCHLORIDE
     Dosage: UD
     Dates: start: 20080101
  10. PRAVASTATIN [Concomitant]
     Active Substance: PRAVASTATIN\PRAVASTATIN SODIUM
     Dosage: UD
     Route: 048
     Dates: start: 20080101
  11. POTASSIUM [Concomitant]
     Active Substance: POTASSIUM
     Dosage: UD
     Route: 048
     Dates: start: 20080101
  12. LETAIRIS [Suspect]
     Active Substance: AMBRISENTAN
     Indication: PULMONARY ARTERIAL HYPERTENSION
     Route: 048
     Dates: start: 20080117, end: 20080312
  13. LISINOPRIL. [Concomitant]
     Active Substance: LISINOPRIL
     Dosage: UD
     Route: 048
     Dates: start: 20080101
  14. PROCARDIA [Concomitant]
     Active Substance: NIFEDIPINE
     Dosage: UD
     Route: 048
     Dates: start: 20080101
  15. ZETIA [Concomitant]
     Active Substance: EZETIMIBE
     Dosage: UD
     Route: 048
     Dates: start: 20080101
  16. ASPIRIN. [Concomitant]
     Active Substance: ASPIRIN
     Dosage: UD
     Route: 048
     Dates: start: 20080101

REACTIONS (1)
  - Haemoglobin decreased [None]
